FAERS Safety Report 5757764-4 (Version None)
Quarter: 2008Q2

REPORT INFORMATION
  Report Type: 
  Country: None (occurrence: None)
  Receive Date: 20080529
  Receipt Date: 20080513
  Transmission Date: 20081010
  Serious: Yes (Hospitalization)
  Sender: FDA-Public Use
  Company Number: 230438J08CAN

PATIENT
  Sex: Female

DRUGS (9)
  1. REBIF [Suspect]
     Indication: MULTIPLE SCLEROSIS
     Dosage: 44 MCG
     Dates: start: 20040511, end: 20080101
  2. REBIF [Suspect]
     Indication: MULTIPLE SCLEROSIS
     Dosage: 44 MCG
     Dates: start: 20080101
  3. GABAPENTIN [Concomitant]
  4. IRON [Concomitant]
  5. CITALOPRAM /00582601/ [Concomitant]
  6. ROSUVASTATIN [Concomitant]
  7. CLONAZEPAM [Concomitant]
  8. HYDROMORPHONE HYDROCHLORIDE [Concomitant]
  9. ANASTROZOLE [Concomitant]

REACTIONS (4)
  - ARTHRALGIA [None]
  - FATIGUE [None]
  - INFLUENZA LIKE ILLNESS [None]
  - THROAT CANCER [None]
